FAERS Safety Report 9924459 (Version 1)
Quarter: 2014Q1

REPORT INFORMATION
  Report Type: Spontaneous
  Country: IT (occurrence: None)
  Receive Date: 20140220
  Receipt Date: 20140220
  Transmission Date: 20141002
  Serious: Yes (Other)
  Sender: FDA-Public Use
  Company Number: 2014/007

PATIENT
  Age: 3 Year
  Sex: 0

DRUGS (1)
  1. VALPROIC ACID [Suspect]
     Indication: PETIT MAL EPILEPSY

REACTIONS (2)
  - Petit mal epilepsy [None]
  - Condition aggravated [None]
